FAERS Safety Report 10072045 (Version 1)
Quarter: 2014Q2

REPORT INFORMATION
  Report Type: Spontaneous
  Country: US (occurrence: None)
  Receive Date: 20140410
  Receipt Date: 20140410
  Transmission Date: 20141212
  Serious: Yes (Disabling)
  Sender: FDA-Public Use
  Company Number: None

PATIENT
  Age: 67 Year
  Sex: Female
  Weight: 66.23 kg

DRUGS (6)
  1. ALLOPURINOL [Suspect]
     Indication: GOUT
     Dosage: 90 TABS
     Route: 048
     Dates: start: 20140203, end: 20140228
  2. ALLOPURINOL [Suspect]
     Indication: BLOOD URIC ACID INCREASED
     Dosage: 90 TABS
     Route: 048
     Dates: start: 20140203, end: 20140228
  3. BENICAR [Concomitant]
  4. LIPITOR [Concomitant]
  5. COQ10 [Concomitant]
  6. VIT D3 [Concomitant]

REACTIONS (9)
  - Pyrexia [None]
  - Pain [None]
  - Rash generalised [None]
  - Stomatitis [None]
  - Oropharyngeal pain [None]
  - Fatigue [None]
  - Decreased appetite [None]
  - Nausea [None]
  - Chromaturia [None]
